FAERS Safety Report 17770100 (Version 1)
Quarter: 2020Q2

REPORT INFORMATION
  Report Type: Spontaneous
  Country: US (occurrence: US)
  Receive Date: 20200512
  Receipt Date: 20200512
  Transmission Date: 20200714
  Serious: Yes (Other)
  Sender: FDA-Public Use
  Company Number: US-TORRENT-00008721

PATIENT
  Sex: Female
  Weight: 90 kg

DRUGS (2)
  1. LOSARTAN AND HYDROCHLOROTHIAZIDE [Suspect]
     Active Substance: HYDROCHLOROTHIAZIDE\LOSARTAN POTASSIUM
     Indication: HYPERTENSION
     Dosage: 100/25 MG
  2. LANTUS [Concomitant]
     Active Substance: INSULIN GLARGINE
     Indication: DIABETES MELLITUS
     Dosage: ONCE IN THE EVENING

REACTIONS (6)
  - Hair disorder [Unknown]
  - Hypersensitivity [Unknown]
  - Headache [Unknown]
  - Pain [Unknown]
  - Influenza [Unknown]
  - Burning sensation [Unknown]

NARRATIVE: CASE EVENT DATE: 2019
